FAERS Safety Report 17806756 (Version 3)
Quarter: 2020Q4

REPORT INFORMATION
  Report Type: Report from Study
  Country: GB (occurrence: GB)
  Receive Date: 20200520
  Receipt Date: 20201020
  Transmission Date: 20210113
  Serious: Yes (Other)
  Sender: FDA-Public Use
  Company Number: GB-SAMSUNG BIOEPIS-SB-2020-17155

PATIENT
  Sex: Female

DRUGS (1)
  1. IMRALDI [Suspect]
     Active Substance: ADALIMUMAB
     Indication: PSORIATIC ARTHROPATHY
     Route: 058
     Dates: start: 20191220

REACTIONS (11)
  - Immunosuppression [Unknown]
  - Inflammation [Unknown]
  - Pain [Unknown]
  - Arthralgia [Unknown]
  - Injection site mass [Unknown]
  - Sleep disorder [Unknown]
  - Anxiety [Unknown]
  - Stress [Unknown]
  - Pain in extremity [Unknown]
  - Injection site erythema [Unknown]
  - Mood altered [Unknown]
